FAERS Safety Report 20861838 (Version 1)
Quarter: 2022Q2

REPORT INFORMATION
  Report Type: Spontaneous
  Country: US (occurrence: None)
  Receive Date: 20220520
  Receipt Date: 20220520
  Transmission Date: 20220720
  Serious: Yes (Other)
  Sender: FDA-Public Use
  Company Number: None

PATIENT
  Age: 64 Year
  Sex: Female
  Weight: 74.7 kg

DRUGS (14)
  1. JARDIANCE [Suspect]
     Active Substance: EMPAGLIFLOZIN
     Indication: Blood glucose increased
     Dosage: OTHER QUANTITY : 1 TABLET(S);?
     Route: 048
     Dates: start: 20220301, end: 20220520
  2. REPATHA [Concomitant]
  3. ELMIRON HIDROXYZINE [Concomitant]
  4. PROLIA [Concomitant]
     Active Substance: DENOSUMAB
  5. POTASSIAM CITRATE [Concomitant]
  6. XANAX [Concomitant]
     Active Substance: ALPRAZOLAM
  7. ZOLOFT [Concomitant]
     Active Substance: SERTRALINE HYDROCHLORIDE
  8. WELLBRUTRIN [Concomitant]
  9. FLUTICAZONE [Concomitant]
  10. CHOLECALCIFEROL [Concomitant]
     Active Substance: CHOLECALCIFEROL
  11. FISH OIL [Concomitant]
     Active Substance: FISH OIL
  12. BIOTIN [Concomitant]
     Active Substance: BIOTIN
  13. CALTRATE [Concomitant]
     Active Substance: CALCIUM CARBONATE
  14. VITAMIN B12 [Concomitant]
     Active Substance: CYANOCOBALAMIN

REACTIONS (2)
  - Genital burning sensation [None]
  - Lichen sclerosus [None]

NARRATIVE: CASE EVENT DATE: 20220520
